FAERS Safety Report 6355165-1 (Version None)
Quarter: 2009Q3

REPORT INFORMATION
  Report Type: 
  Country: None (occurrence: None)
  Receive Date: 20090914
  Receipt Date: 20090904
  Transmission Date: 20100115
  Serious: Yes (Hospitalization, Other)
  Sender: FDA-Public Use
  Company Number: CA-ABBOTT-09P-028-0586618-00

PATIENT
  Sex: Female
  Weight: 77.18 kg

DRUGS (8)
  1. HUMIRA [Suspect]
     Indication: CROHN'S DISEASE
     Route: 058
     Dates: start: 20081126
  2. MULTI-VITAMIN [Concomitant]
     Indication: DRUG USE FOR UNKNOWN INDICATION
  3. VITAMIN D [Concomitant]
     Indication: DRUG USE FOR UNKNOWN INDICATION
  4. SYNTHROID [Concomitant]
     Indication: DRUG USE FOR UNKNOWN INDICATION
  5. CELEXA [Concomitant]
     Indication: DRUG USE FOR UNKNOWN INDICATION
  6. TOMAZEPAM [Concomitant]
     Indication: DRUG USE FOR UNKNOWN INDICATION
  7. FLEXERIL [Concomitant]
     Indication: DRUG USE FOR UNKNOWN INDICATION
  8. NAPROSYN [Concomitant]
     Indication: DRUG USE FOR UNKNOWN INDICATION

REACTIONS (4)
  - ADHESION [None]
  - GASTROINTESTINAL STENOSIS [None]
  - OVARIAN CYST [None]
  - PERITONEAL ADHESIONS [None]
